FAERS Safety Report 7180380 (Version 2)
Quarter: 2013Q1

REPORT INFORMATION
  Report Type: Spontaneous
  Country: TR (occurrence: None)
  Receive Date: 20091103
  Receipt Date: 20130123
  Transmission Date: 20140127
  Serious: Yes (Hospitalization, Other)
  Sender: FDA-Public Use
  Company Number: AUR-APL-2009-00968

PATIENT
  Age: 21 Year
  Sex: Male

DRUGS (3)
  1. FLUOXETINE (FLUOXETINE) [Suspect]
     Indication: DEPRESSIVE SYMPTOM
     Dosage: (10MG,1  D)
  2. ACITRETIN (ACITRETIN) [Suspect]
     Indication: PUSTULAR PSORIASIS
     Dosage: (35 MG, 1 IN D)
  3. CYCLOSPORIN A(CICLOSPORIN) [Concomitant]

REACTIONS (5)
  - Depressive symptom [None]
  - Dermatitis exfoliative [None]
  - Drug interaction [None]
  - Pustular psoriasis [None]
  - Condition aggravated [None]
